FAERS Safety Report 13061699 (Version 1)
Quarter: 2016Q4

REPORT INFORMATION
  Report Type: Spontaneous
  Country: US (occurrence: US)
  Receive Date: 20161226
  Receipt Date: 20161226
  Transmission Date: 20170207
  Serious: No
  Sender: FDA-Public Use
  Company Number: US-NOVEN PHARMACEUTICALS, INC.-US2016002052

PATIENT

DRUGS (4)
  1. MINIVELLE [Suspect]
     Active Substance: ESTRADIOL
     Indication: HOT FLUSH
     Dosage: 0.05 MG, UNKNOWN
     Route: 062
     Dates: start: 201605
  2. VITAMIN-B COMPLEX [Concomitant]
  3. MINIVELLE [Suspect]
     Active Substance: ESTRADIOL
     Indication: MENOPAUSAL SYMPTOMS
  4. VITAMIN D [Concomitant]
     Active Substance: CHOLECALCIFEROL

REACTIONS (6)
  - Hot flush [Unknown]
  - Off label use [Unknown]
  - Wrong technique in product usage process [Unknown]
  - Product adhesion issue [Unknown]
  - Crying [Unknown]
  - Feeling abnormal [Unknown]

NARRATIVE: CASE EVENT DATE: 201605
